FAERS Safety Report 7763503-8 (Version None)
Quarter: 2011Q3

REPORT INFORMATION
  Report Type: 
  Country: None (occurrence: None)
  Receive Date: 20110920
  Receipt Date: 20110913
  Transmission Date: 20111222
  Serious: Yes (Other)
  Sender: FDA-Public Use
  Company Number: US-AMGEN-USASP2011046949

PATIENT
  Sex: Female

DRUGS (4)
  1. XGEVA [Suspect]
  2. XGEVA [Suspect]
  3. FASLODEX [Concomitant]
     Dates: end: 20110815
  4. XGEVA [Suspect]
     Indication: METASTASES TO BONE
     Dosage: UNK UNK, Q4WK
     Dates: end: 20110815

REACTIONS (5)
  - TOOTH FRACTURE [None]
  - WEIGHT ABNORMAL [None]
  - APHAGIA [None]
  - MASTICATION DISORDER [None]
  - IMMUNE SYSTEM DISORDER [None]
